FAERS Safety Report 14017656 (Version 1)
Quarter: 2017Q3

REPORT INFORMATION
  Report Type: Spontaneous
  Country: US (occurrence: US)
  Receive Date: 20170927
  Receipt Date: 20170927
  Transmission Date: 20171128
  Serious: No
  Sender: FDA-Public Use
  Company Number: US-009507513-1709USA011289

PATIENT

DRUGS (2)
  1. ZOSTAVAX [Suspect]
     Active Substance: VARICELLA-ZOSTER VIRUS STRAIN OKA/MERCK LIVE ANTIGEN
     Indication: PROPHYLAXIS
     Route: 030
     Dates: start: 20170920, end: 20170920
  2. STERILE DILUENT [Suspect]
     Active Substance: WATER
     Dosage: UNK
     Route: 030
     Dates: start: 20170920

REACTIONS (2)
  - Product use issue [Unknown]
  - No adverse event [Unknown]

NARRATIVE: CASE EVENT DATE: 20170920
